FAERS Safety Report 7346731-5 (Version None)
Quarter: 2011Q1

REPORT INFORMATION
  Report Type: 
  Country: None (occurrence: None)
  Receive Date: 20110302
  Receipt Date: 20080115
  Transmission Date: 20110831
  Serious: Yes (Life-Threatening, Hospitalization, Disabling)
  Sender: FDA-Public Use
  Company Number: US-2008-00476

PATIENT
  Age: 70 Year
  Sex: Male

DRUGS (19)
  1. DICLOFENAC [Concomitant]
  2. TIOTROPIUM BROMIDE/ TIOTROPIUM BROMIDE MONOHYDRATE (SPIRIVA) [Concomitant]
  3. FLUCOXACILLIN [Concomitant]
  4. XALATAN [Concomitant]
  5. SIMVASTATIN [Suspect]
     Indication: BLOOD CHOLESTEROL INCREASED
     Dosage: ORAL
     Route: 048
  6. DORZOLAMIDE HYDROCHLORIDE/ TIMOLOL MALEATE (COSOPT) [Concomitant]
  7. SENNA [Concomitant]
  8. ASPIRIN [Concomitant]
  9. MAGNESIUM HYDROXIDE [Concomitant]
  10. GLUCOSAMINE [Concomitant]
  11. LACTULOSE [Concomitant]
  12. MACROGOL 3350/POLYETHYLENE GLYCOL 3350/POTASSIUM CHLORIDE/SOD BICARBON [Concomitant]
  13. PARACEMTAOL [Concomitant]
  14. TRAMADOL HCL [Concomitant]
  15. FENTANYL [Concomitant]
  16. FUSIDIC ACID [Concomitant]
  17. GABAPENTIN [Concomitant]
  18. AMTRIPTYLINE [Concomitant]
  19. LISINOPRIL [Concomitant]

REACTIONS (3)
  - RENAL FAILURE ACUTE [None]
  - RHABDOMYOLYSIS [None]
  - RESPIRATORY FAILURE [None]
